FAERS Safety Report 7316250-0 (Version None)
Quarter: 2011Q1

REPORT INFORMATION
  Report Type: 
  Country: None (occurrence: None)
  Receive Date: 20110225
  Receipt Date: 20110218
  Transmission Date: 20110831
  Serious: Yes (Disabling, Other)
  Sender: FDA-Public Use
  Company Number: GB-CEPHALON-2011000802

PATIENT
  Sex: Female

DRUGS (2)
  1. ATRA [Suspect]
  2. TRISENOX [Suspect]
     Indication: ACUTE MYELOID LEUKAEMIA
     Route: 042
     Dates: start: 20091110, end: 20101112

REACTIONS (1)
  - PUSTULAR PSORIASIS [None]
